FAERS Safety Report 5453428-5 (Version None)
Quarter: 2007Q3

REPORT INFORMATION
  Report Type: 
  Country: None (occurrence: None)
  Receive Date: 20070913
  Receipt Date: 20070905
  Transmission Date: 20080115
  Serious: Yes (Hospitalization)
  Sender: FDA-Public Use
  Company Number: TAP2007Q01151

PATIENT
  Age: 43 Year
  Sex: Female
  Weight: 59.09 kg

DRUGS (3)
  1. LUPRON [Suspect]
     Indication: IN VITRO FERTILISATION
     Dosage: 20 MG, 1 IN 1 D, INJECTION
     Dates: start: 20070125, end: 20070222
  2. FOLLISTIM [Suspect]
     Indication: IN VITRO FERTILISATION
     Dates: start: 20070101, end: 20070222
  3. MENOPUR [Suspect]
     Indication: IN VITRO FERTILISATION
     Dates: start: 20070101, end: 20070222

REACTIONS (8)
  - CONVERSION DISORDER [None]
  - DIZZINESS [None]
  - DYSPHASIA [None]
  - EYE SWELLING [None]
  - GROIN PAIN [None]
  - HOT FLUSH [None]
  - SWELLING FACE [None]
  - TREMOR [None]
